FAERS Safety Report 8852458 (Version 1)
Quarter: 2012Q4

REPORT INFORMATION
  Report Type: 
  Country: DE (occurrence: DE)
  Receive Date: 20121022
  Receipt Date: 20121022
  Transmission Date: 20130627
  Serious: Yes (Other)
  Sender: FDA-Public Use
  Company Number: DE-PFIZER INC-2012258416

PATIENT
  Age: 43 Year
  Sex: Male
  Weight: 112 kg

DRUGS (1)
  1. ATORVASTATIN CALCIUM [Suspect]
     Indication: HYPERLIPIDAEMIA
     Dosage: 80 mg, 1x/day
     Route: 048
     Dates: start: 20120807

REACTIONS (2)
  - Myalgia [Not Recovered/Not Resolved]
  - Cognitive disorder [Not Recovered/Not Resolved]
